FAERS Safety Report 6061699-X (Version None)
Quarter: 2009Q1

REPORT INFORMATION
  Report Type: 
  Country: None (occurrence: None)
  Receive Date: 20090202
  Receipt Date: 20090122
  Transmission Date: 20090719
  Serious: Yes (Other)
  Sender: FDA-Public Use
  Company Number: JP-PFIZER INC-2009160327

PATIENT

DRUGS (1)
  1. CHAMPIX [Suspect]
     Route: 048
     Dates: end: 20090118

REACTIONS (3)
  - DRUG HYPERSENSITIVITY [None]
  - EOSINOPHIL COUNT INCREASED [None]
  - RASH [None]
